FAERS Safety Report 10636555 (Version 2)
Quarter: 2014Q4

REPORT INFORMATION
  Report Type: Report from Study
  Country: US (occurrence: US)
  Receive Date: 20141208
  Receipt Date: 20141208
  Transmission Date: 20150529
  Serious: Yes (Other)
  Sender: FDA-Public Use
  Company Number: US-AMGEN-USASP2014010508

PATIENT
  Age: 63 Year
  Sex: Female
  Weight: 52.61 kg

DRUGS (1)
  1. ENBREL [Suspect]
     Active Substance: ETANERCEPT
     Indication: RHEUMATOID ARTHRITIS
     Dosage: 50 MG, QWK
     Route: 058
     Dates: start: 2006

REACTIONS (9)
  - Hip arthroplasty [Unknown]
  - Injection site swelling [Unknown]
  - Injection site reaction [Unknown]
  - Arthritis infective [Not Recovered/Not Resolved]
  - Pain [Recovered/Resolved]
  - Injection site erythema [Unknown]
  - Joint arthroplasty [Unknown]
  - Pyrexia [Recovered/Resolved]
  - Injection site pruritus [Unknown]

NARRATIVE: CASE EVENT DATE: 201303
